FAERS Safety Report 7471234-7 (Version None)
Quarter: 2011Q2

REPORT INFORMATION
  Report Type: 
  Country: None (occurrence: None)
  Receive Date: 20110510
  Receipt Date: 20110427
  Transmission Date: 20111010
  Serious: Yes (Other)
  Sender: FDA-Public Use
  Company Number: JP-CELGENEUS-087-21880-11043478

PATIENT
  Sex: Male

DRUGS (23)
  1. REVLIMID [Suspect]
     Dosage: 10 MILLIGRAM
     Route: 048
     Dates: start: 20110202, end: 20110215
  2. DEXAMETHASONE [Suspect]
     Dosage: 40 MILLIGRAM
     Route: 048
     Dates: start: 20110202, end: 20110203
  3. LENDORMIN D [Concomitant]
     Dosage: .25 MILLIGRAM
     Route: 048
     Dates: start: 20081115
  4. CIPROXAN [Concomitant]
     Dosage: 600 MILLIGRAM
     Route: 048
     Dates: start: 20110119, end: 20110125
  5. REVLIMID [Suspect]
     Dosage: 10 MILLIGRAM
     Route: 048
     Dates: start: 20110105, end: 20110118
  6. LEUPLIN [Concomitant]
     Dosage: 3.75 MILLIGRAM
     Route: 058
     Dates: start: 20101227, end: 20101227
  7. DEXAMETHASONE [Suspect]
     Indication: MULTIPLE MYELOMA
     Dosage: 40 MILLIGRAM
     Route: 048
     Dates: start: 20101203, end: 20101203
  8. MAGLAX [Concomitant]
     Dosage: 660 MILLIGRAM
     Route: 048
     Dates: start: 20081107
  9. SPIRIVA [Concomitant]
     Dosage: 18 MICROGRAM
     Route: 055
     Dates: start: 20090203
  10. LEUPLIN [Concomitant]
     Dosage: 3.75 MILLIGRAM
     Route: 058
     Dates: start: 20110202, end: 20110202
  11. REVLIMID [Suspect]
     Indication: MULTIPLE MYELOMA
     Dosage: 10 MILLIGRAM
     Route: 048
     Dates: start: 20101203, end: 20101223
  12. DEXAMETHASONE [Suspect]
     Dosage: 40 MILLIGRAM
     Route: 048
     Dates: start: 20101215, end: 20101215
  13. URIEF [Concomitant]
     Dosage: 8 MILLIGRAM
     Route: 048
     Dates: start: 20091208
  14. HOKUNALIN:TAPE [Concomitant]
     Route: 065
     Dates: start: 20110105
  15. ALOSITOL [Concomitant]
     Dosage: 100 MILLIGRAM
     Route: 048
     Dates: start: 20060622
  16. TAKEPRON [Concomitant]
     Indication: PROPHYLAXIS
     Dosage: 30 MILLIGRAM
     Route: 048
     Dates: start: 20101203
  17. LASIX [Concomitant]
     Dosage: 10 MILLIGRAM
     Route: 051
     Dates: start: 20101210, end: 20101210
  18. DEXAMETHASONE [Suspect]
     Dosage: 40 MILLIGRAM
     Route: 048
     Dates: start: 20110105, end: 20110106
  19. SPIRIVA [Concomitant]
     Route: 055
     Dates: start: 20110105
  20. ASPIRIN [Concomitant]
     Indication: PROPHYLAXIS
     Dosage: 100 MILLIGRAM
     Route: 048
     Dates: start: 20101203, end: 20110201
  21. PRIMPERAN TAB [Concomitant]
     Indication: PROPHYLAXIS
     Dosage: 10 MILLIGRAM
     Route: 051
     Dates: start: 20101211, end: 20101211
  22. DEXAMETHASONE [Suspect]
     Dosage: 40 MILLIGRAM
     Route: 048
     Dates: start: 20101210, end: 20101210
  23. HOKUNALIN:TAPE [Concomitant]
     Dosage: 2 MILLIGRAM
     Route: 065
     Dates: start: 20090209

REACTIONS (8)
  - ECZEMA [None]
  - DECREASED APPETITE [None]
  - DELIRIUM [None]
  - UPPER RESPIRATORY TRACT INFECTION [None]
  - UPPER RESPIRATORY TRACT INFLAMMATION [None]
  - PLATELET COUNT DECREASED [None]
  - CONSTIPATION [None]
  - BACK PAIN [None]
